FAERS Safety Report 4370694-8 (Version None)
Quarter: 2004Q2

REPORT INFORMATION
  Report Type: 
  Country: None (occurrence: None)
  Receive Date: 20040601
  Receipt Date: 20040525
  Transmission Date: 20050107
  Serious: Yes (Death)
  Sender: FDA-Public Use
  Company Number: 2004-116341-NL

PATIENT
  Age: 37 Year
  Sex: Male

DRUGS (5)
  1. MIRTAZAPINE [Suspect]
     Dosage: 15 MG
     Dates: start: 20040228, end: 20040322
  2. LORAZEPAM [Suspect]
     Dosage: SEE IMAGE
     Dates: start: 20040301, end: 20040301
  3. LORAZEPAM [Suspect]
     Dosage: SEE IMAGE
     Dates: start: 20040302, end: 20040322
  4. ESCITALOPRAM [Suspect]
     Dosage: SEE IMAGE
     Dates: start: 20040227, end: 20040227
  5. ESCITALOPRAM [Suspect]
     Dosage: SEE IMAGE
     Dates: start: 20040228, end: 20040322

REACTIONS (2)
  - COMPLETED SUICIDE [None]
  - GUN SHOT WOUND [None]
